FAERS Safety Report 8019296-2 (Version None)
Quarter: 2012Q1

REPORT INFORMATION
  Report Type: 
  Country: None (occurrence: None)
  Receive Date: 20120103
  Receipt Date: 20111221
  Transmission Date: 20120608
  Serious: Yes (Hospitalization)
  Sender: FDA-Public Use
  Company Number: KR-ELI_LILLY_AND_COMPANY-KR200705002274

PATIENT
  Sex: Male
  Weight: 56.7 kg

DRUGS (7)
  1. CARBOPLATIN [Suspect]
     Indication: NON-SMALL CELL LUNG CANCER
     Dosage: D 1
     Route: 042
     Dates: start: 20070208, end: 20070302
  2. GRANISETRON [Concomitant]
     Indication: NAUSEA
     Dates: start: 20070208, end: 20070212
  3. FOLIC ACID [Concomitant]
     Dosage: 1 MG, DAILY (1/D)
     Route: 048
     Dates: start: 20070201, end: 20070323
  4. DEXAMETHASONE [Concomitant]
     Dosage: 4 MG, 2/D
     Route: 048
     Dates: start: 20070207, end: 20070212
  5. DEXTROSE [Concomitant]
     Dosage: 180 ML, UNK
     Route: 042
  6. VITAMIN B-12 [Concomitant]
     Dosage: 1000 UG, DAILY (1/D)
     Dates: start: 20070201, end: 20070212
  7. PEMETREXED [Suspect]
     Indication: NON-SMALL CELL LUNG CANCER
     Dosage: D1
     Route: 042
     Dates: start: 20070208, end: 20070302

REACTIONS (1)
  - NEPHROTIC SYNDROME [None]
